FAERS Safety Report 6208513-7 (Version None)
Quarter: 2009Q2

REPORT INFORMATION
  Report Type: 
  Country: None (occurrence: None)
  Receive Date: 20090529
  Receipt Date: 20090522
  Transmission Date: 20091009
  Serious: Yes (Life-Threatening, Hospitalization, Other)
  Sender: FDA-Public Use
  Company Number: CA-AMGEN-KDL346465

PATIENT
  Sex: Male
  Weight: 61.3 kg

DRUGS (14)
  1. ENBREL [Suspect]
     Indication: RHEUMATOID ARTHRITIS
     Dates: start: 20040310, end: 20090301
  2. PREDNISONE [Suspect]
  3. MORPHINE [Concomitant]
  4. CRESTOR [Concomitant]
  5. FLEXERIL [Concomitant]
  6. LOSEC [Concomitant]
  7. BISOPROLOL [Concomitant]
  8. ALLOPURINOL [Concomitant]
  9. FOLIC ACID [Concomitant]
  10. VASOTEC [Concomitant]
     Dates: end: 20090301
  11. HYDROCHLOROTHIAZIDE [Concomitant]
     Dates: end: 20090301
  12. NORVASC [Concomitant]
     Dates: end: 20090301
  13. ALDACTONE [Concomitant]
     Dates: end: 20090301
  14. TAMBOCOR [Concomitant]
     Dates: end: 20090301

REACTIONS (5)
  - CELLULITIS [None]
  - INFECTION [None]
  - PNEUMONIA [None]
  - RENAL FAILURE ACUTE [None]
  - SEPTIC SHOCK [None]
